FAERS Safety Report 12853979 (Version 1)
Quarter: 2016Q4

REPORT INFORMATION
  Report Type: Spontaneous
  Country: US (occurrence: US)
  Receive Date: 20161017
  Receipt Date: 20161017
  Transmission Date: 20170207
  Serious: No
  Sender: FDA-Public Use
  Company Number: US-BAYER-2016-199125

PATIENT
  Age: 76 Year
  Sex: Male
  Weight: 118.37 kg

DRUGS (7)
  1. METAMUCIL [Concomitant]
     Active Substance: PLANTAGO SEED
  2. CELEXA [Concomitant]
     Active Substance: CITALOPRAM HYDROBROMIDE
  3. MIRALAX [Suspect]
     Active Substance: POLYETHYLENE GLYCOL 3350
     Indication: GASTROINTESTINAL DISORDER
     Dosage: UNK
     Route: 048
     Dates: start: 201604
  4. VICTOZA [Concomitant]
     Active Substance: LIRAGLUTIDE
  5. OMEGA 3 [Concomitant]
     Active Substance: OMEGA-3 FATTY ACIDS
  6. MOBIC [Concomitant]
     Active Substance: MELOXICAM
  7. ASPIRIN. [Concomitant]
     Active Substance: ASPIRIN

REACTIONS (1)
  - Product use issue [None]
